FAERS Safety Report 25704859 (Version 1)
Quarter: 2025Q3

REPORT INFORMATION
  Report Type: Spontaneous
  Country: CA (occurrence: CA)
  Receive Date: 20250820
  Receipt Date: 20250820
  Transmission Date: 20251021
  Serious: Yes (Hospitalization)
  Sender: DAIICHI
  Company Number: CA-ASTRAZENECA-202508CAN008591CA

PATIENT
  Age: 59 Year
  Sex: Female
  Weight: 60 kg

DRUGS (11)
  1. TRASTUZUMAB DERUXTECAN [Suspect]
     Active Substance: TRASTUZUMAB DERUXTECAN
     Indication: Metastases to peritoneum
     Dosage: 5.4 MG/KG, ONCE EVERY 3 WK
     Route: 042
  2. TRASTUZUMAB DERUXTECAN [Suspect]
     Active Substance: TRASTUZUMAB DERUXTECAN
     Indication: Malignant pleural effusion
  3. TRASTUZUMAB DERUXTECAN [Suspect]
     Active Substance: TRASTUZUMAB DERUXTECAN
     Indication: Hormone receptor positive breast cancer
  4. TRASTUZUMAB DERUXTECAN [Suspect]
     Active Substance: TRASTUZUMAB DERUXTECAN
     Indication: HER2 positive breast cancer
  5. AKYNZEO (NETUPITANT\PALONOSETRON HYDROCHLORIDE) [Concomitant]
     Active Substance: NETUPITANT\PALONOSETRON HYDROCHLORIDE
     Indication: Product used for unknown indication
     Route: 065
  6. CHOLECALCIFEROL [Concomitant]
     Active Substance: CHOLECALCIFEROL
     Indication: Product used for unknown indication
     Route: 065
  7. DEXAMETHASONE [Concomitant]
     Active Substance: DEXAMETHASONE
     Indication: Product used for unknown indication
     Route: 065
  8. ENOXAPARIN [Concomitant]
     Active Substance: ENOXAPARIN
     Indication: Product used for unknown indication
     Route: 065
  9. LOPERAMIDE HYDROCHLORIDE [Concomitant]
     Active Substance: LOPERAMIDE HYDROCHLORIDE
     Indication: Product used for unknown indication
     Route: 065
  10. LORAZEPAM [Concomitant]
     Active Substance: LORAZEPAM
     Indication: Product used for unknown indication
     Route: 065
  11. PANTOPRAZOLE SODIUM [Concomitant]
     Active Substance: PANTOPRAZOLE SODIUM
     Indication: Product used for unknown indication
     Route: 065

REACTIONS (5)
  - Haemoptysis [Recovered/Resolved]
  - Oxygen therapy [Recovered/Resolved]
  - Pulmonary toxicity [Recovered/Resolved]
  - Dyspnoea [Recovered/Resolved]
  - Pneumonitis [Recovered/Resolved]
